FAERS Safety Report 10659254 (Version 1)
Quarter: 2014Q4

REPORT INFORMATION
  Report Type: Spontaneous
  Country: SE (occurrence: SE)
  Receive Date: 20141217
  Receipt Date: 20141217
  Transmission Date: 20150529
  Serious: Yes (Hospitalization)
  Sender: FDA-Public Use
  Company Number: SE-TEVA-528465ISR

PATIENT
  Age: 85 Year
  Sex: Male

DRUGS (11)
  1. SERTRALINE [Concomitant]
     Active Substance: SERTRALINE HYDROCHLORIDE
  2. ALVEDON [Concomitant]
     Active Substance: ACETAMINOPHEN
  3. TROMBYL [Concomitant]
     Active Substance: ASPIRIN
  4. SIFROL [Concomitant]
     Active Substance: PRAMIPEXOLE
  5. SIMVASTATIN. [Concomitant]
     Active Substance: SIMVASTATIN
  6. METOPROLOL [Concomitant]
     Active Substance: METOPROLOL
  7. OXASCAND 10 MG TABLETT [Suspect]
     Active Substance: OXAZEPAM
     Route: 048
     Dates: start: 20131031, end: 20131031
  8. IMDUR [Concomitant]
     Active Substance: ISOSORBIDE MONONITRATE
  9. IMOVANE [Suspect]
     Active Substance: ZOPICLONE
     Route: 048
     Dates: start: 20131031, end: 20131031
  10. CILAXORAL [Concomitant]
  11. MICROLAX [Concomitant]

REACTIONS (7)
  - Blood pH increased [None]
  - Agitation [Recovered/Resolved]
  - Toxicity to various agents [Recovered/Resolved]
  - PO2 abnormal [None]
  - Head injury [None]
  - Heart rate decreased [None]
  - PCO2 abnormal [None]

NARRATIVE: CASE EVENT DATE: 20131031
